FAERS Safety Report 21400348 (Version 1)
Quarter: 2022Q3

REPORT INFORMATION
  Report Type: Spontaneous
  Country: US (occurrence: None)
  Receive Date: 20220930
  Receipt Date: 20220930
  Transmission Date: 20221027
  Serious: No
  Sender: FDA-Public Use
  Company Number: None

PATIENT
  Age: 34 Year
  Sex: Female

DRUGS (1)
  1. SIMPONI [Suspect]
     Active Substance: GOLIMUMAB
     Indication: Colitis ulcerative
     Dosage: 100 MG EVERY MONTH SC
     Route: 058
     Dates: start: 202205

REACTIONS (4)
  - Device defective [None]
  - Needle issue [None]
  - Injection site extravasation [None]
  - Product dose omission issue [None]

NARRATIVE: CASE EVENT DATE: 20220928
